FAERS Safety Report 8494452-8 (Version None)
Quarter: 2012Q3

REPORT INFORMATION
  Report Type: 
  Country: None (occurrence: None)
  Receive Date: 20120709
  Receipt Date: 20120625
  Transmission Date: 20120928
  Serious: No
  Sender: FDA-Public Use
  Company Number: US-JNJFOC-20120612909

PATIENT
  Sex: Female
  Weight: 77.11 kg

DRUGS (2)
  1. HYDROCODONE [Concomitant]
     Indication: PAIN
     Route: 048
  2. DURAGESIC-100 [Suspect]
     Indication: SURGERY
     Route: 062
     Dates: start: 20120101

REACTIONS (6)
  - HYPERHIDROSIS [None]
  - PRODUCT QUALITY ISSUE [None]
  - PAIN [None]
  - DRUG PRESCRIBING ERROR [None]
  - WRONG TECHNIQUE IN DRUG USAGE PROCESS [None]
  - PRODUCT ADHESION ISSUE [None]
